FAERS Safety Report 4280861-X (Version None)
Quarter: 2004Q1

REPORT INFORMATION
  Report Type: 
  Country: None (occurrence: None)
  Receive Date: 20040127
  Receipt Date: 20040115
  Transmission Date: 20041129
  Serious: Yes (Hospitalization)
  Sender: FDA-Public Use
  Company Number: HQWYE456708DEC03

PATIENT
  Age: 87 Year
  Sex: Female

DRUGS (6)
  1. CORDARONE [Suspect]
     Indication: ARRHYTHMIA PROPHYLAXIS
     Dosage: 400 MG 1X PER 1 DAY ORAL; 200 MG 5X PER 1 WK
     Route: 048
     Dates: start: 20031102, end: 20031110
  2. CORDARONE [Suspect]
     Indication: ARRHYTHMIA PROPHYLAXIS
     Dosage: 400 MG 1X PER 1 DAY ORAL; 200 MG 5X PER 1 WK
     Route: 048
     Dates: start: 20031111, end: 20031118
  3. PRAVASTATIN SODIUM [Concomitant]
  4. VASTAREL (TRIMETAZIDINE HYDROCHLORIDE) [Concomitant]
  5. KARDEGIC (ACETYLSALICYLATE LYSINE) [Concomitant]
  6. KARDEGIC (ACETYLSALICYLATE LYSINE) [Concomitant]

REACTIONS (4)
  - CEREBROVASCULAR ACCIDENT [None]
  - DISORIENTATION [None]
  - HEAD DISCOMFORT [None]
  - MALAISE [None]
